FAERS Safety Report 5377309-0 (Version None)
Quarter: 2007Q3

REPORT INFORMATION
  Report Type: 
  Country: None (occurrence: None)
  Receive Date: 20070703
  Receipt Date: 20070625
  Transmission Date: 20080115
  Serious: Yes (Hospitalization)
  Sender: FDA-Public Use
  Company Number: TW-BAUSCH-2007BL002116

PATIENT
  Age: 62 Year
  Sex: Male

DRUGS (1)
  1. TETRACYCLINE HYDROCHLORIDE [Suspect]
     Indication: ANAESTHESIA
     Route: 008

REACTIONS (9)
  - BLOOD PRESSURE INCREASED [None]
  - CARDIO-RESPIRATORY ARREST [None]
  - COMA [None]
  - CONVULSION [None]
  - HEART RATE INCREASED [None]
  - HYPERTHERMIA MALIGNANT [None]
  - LEUKOCYTOSIS [None]
  - METABOLIC ACIDOSIS [None]
  - RHABDOMYOLYSIS [None]
